FAERS Safety Report 4751031-3 (Version None)
Quarter: 2005Q3

REPORT INFORMATION
  Report Type: 
  Country: None (occurrence: None)
  Receive Date: 20050822
  Receipt Date: 20050811
  Transmission Date: 20060218
  Serious: Yes (Death, Hospitalization)
  Sender: FDA-Public Use
  Company Number: 200508IM000407

PATIENT
  Age: 85 Year
  Sex: Female

DRUGS (1)
  1. ACTIMMUNE [Suspect]
     Indication: IDIOPATHIC PULMONARY FIBROSIS
     Dosage: 200 UG, TIW, SUBCUTANEOUS
     Route: 058
     Dates: start: 20031113, end: 20050701

REACTIONS (4)
  - CARDIAC FAILURE [None]
  - COMPLICATED FRACTURE [None]
  - FALL [None]
  - HIP FRACTURE [None]
